FAERS Safety Report 22805843 (Version 3)
Quarter: 2023Q4

REPORT INFORMATION
  Report Type: Spontaneous
  Country: US (occurrence: US)
  Receive Date: 20230809
  Receipt Date: 20231031
  Transmission Date: 20240110
  Serious: Yes (Other)
  Sender: FDA-Public Use
  Company Number: US-PPDUS-2023ST002292

PATIENT
  Age: 69 Year
  Sex: Female

DRUGS (1)
  1. ORSERDU [Suspect]
     Active Substance: ELACESTRANT
     Indication: Product used for unknown indication
     Dosage: 345 MG, ONCE A DAY
     Route: 048
     Dates: start: 202306, end: 20231023

REACTIONS (6)
  - Neuropathy peripheral [Unknown]
  - Liver disorder [Unknown]
  - Alopecia [Unknown]
  - Sciatica [Unknown]
  - Back disorder [Unknown]
  - Stomatitis [Unknown]
